FAERS Safety Report 6384193-5 (Version None)
Quarter: 2009Q4

REPORT INFORMATION
  Report Type: 
  Country: None (occurrence: None)
  Receive Date: 20091001
  Receipt Date: 20090922
  Transmission Date: 20100525
  Serious: Yes (Death, Hospitalization)
  Sender: FDA-Public Use
  Company Number: A0808320A

PATIENT
  Age: 70 Year
  Sex: Female
  Weight: 97.7 kg

DRUGS (9)
  1. AVANDIA [Suspect]
     Dosage: 4MG TWICE PER DAY
     Route: 048
     Dates: start: 19991101, end: 20030101
  2. ZOCOR [Concomitant]
  3. PRANDIN [Concomitant]
  4. FOSAMAX [Concomitant]
  5. GLUCOPHAGE [Concomitant]
  6. HUMULIN N [Concomitant]
  7. ZESTORETIC [Concomitant]
  8. DARVOCET [Concomitant]
  9. PRANDIN [Concomitant]

REACTIONS (5)
  - CARDIAC FAILURE CONGESTIVE [None]
  - CARDIOGENIC SHOCK [None]
  - CORONARY ARTERY DISEASE [None]
  - ISCHAEMIC CARDIOMYOPATHY [None]
  - MYOCARDIAL INFARCTION [None]
